FAERS Safety Report 5905498-5 (Version None)
Quarter: 2008Q4

REPORT INFORMATION
  Report Type: 
  Country: None (occurrence: None)
  Receive Date: 20081001
  Receipt Date: 20081001
  Transmission Date: 20090506
  Serious: Yes (Hospitalization)
  Sender: FDA-Public Use
  Company Number: None

PATIENT
  Age: 60 Year
  Sex: Female
  Weight: 67 kg

DRUGS (16)
  1. TEMOZOLOMIDE [Suspect]
     Indication: GLIOBLASTOMA MULTIFORME
     Dosage: 130MG DAILY PO
     Route: 048
     Dates: start: 20080701, end: 20080815
  2. BEVACIZUMAB [Suspect]
     Indication: GLIOBLASTOMA MULTIFORME
     Dosage: 696MG EVERY 14 DAYS IV
     Route: 042
     Dates: start: 20080701
  3. BEVACIZUMAB [Suspect]
     Indication: GLIOBLASTOMA MULTIFORME
     Dosage: 696MG EVERY 14 DAYS IV
     Route: 042
     Dates: start: 20080715
  4. BEVACIZUMAB [Suspect]
     Indication: GLIOBLASTOMA MULTIFORME
     Dosage: 696MG EVERY 14 DAYS IV
     Route: 042
     Dates: start: 20080728
  5. BEVACIZUMAB [Suspect]
     Indication: GLIOBLASTOMA MULTIFORME
     Dosage: 696MG EVERY 14 DAYS IV
     Route: 042
     Dates: start: 20080812
  6. CA [Concomitant]
  7. DECADRON [Concomitant]
  8. SEPTRA [Concomitant]
  9. VALCYTE [Concomitant]
  10. COLACE [Concomitant]
  11. LASIX [Concomitant]
  12. KYTRIL [Concomitant]
  13. KEPPRA [Concomitant]
  14. MECLIZINE [Concomitant]
  15. PROTONIX [Concomitant]
  16. MRALAX [Concomitant]

REACTIONS (6)
  - ACUTE RESPIRATORY DISTRESS SYNDROME [None]
  - ANAEMIA [None]
  - CYTOMEGALOVIRUS VIRAEMIA [None]
  - PNEUMOCYSTIS JIROVECI PNEUMONIA [None]
  - PNEUMONITIS [None]
  - THROMBOCYTOPENIA [None]
